FAERS Safety Report 20995058 (Version 1)
Quarter: 2022Q2

REPORT INFORMATION
  Report Type: Spontaneous
  Country: CA (occurrence: CA)
  Receive Date: 20220622
  Receipt Date: 20220622
  Transmission Date: 20220721
  Serious: Yes (Life-Threatening, Other)
  Sender: FDA-Public Use
  Company Number: CA-009507513-2206CAN005727

PATIENT
  Age: 53 Year
  Sex: Male
  Weight: 165 kg

DRUGS (26)
  1. INVANZ [Suspect]
     Active Substance: ERTAPENEM SODIUM
     Dosage: 1.0 GRAM, 1 EVERY 1 DAYS
     Route: 042
  2. ACETAMINOPHEN [Concomitant]
     Active Substance: ACETAMINOPHEN
  3. AMIODARONE [Concomitant]
     Active Substance: AMIODARONE
  4. ARGATROBAN [Concomitant]
     Active Substance: ARGATROBAN
  5. ATENOLOL [Concomitant]
     Active Substance: ATENOLOL
  6. ATIVAN [Concomitant]
     Active Substance: LORAZEPAM
  7. BETAMETHASONE [Concomitant]
     Active Substance: BETAMETHASONE
  8. BOTOX [Concomitant]
     Active Substance: ONABOTULINUMTOXINA
  9. BUPROPION [Concomitant]
     Active Substance: BUPROPION
     Route: 065
  10. CYCLOBENZAPRINE [Concomitant]
     Active Substance: CYCLOBENZAPRINE
  11. DULOXETINE HYDROCHLORIDE [Concomitant]
     Active Substance: DULOXETINE HYDROCHLORIDE
     Route: 048
  12. FENOFIBRATE [Concomitant]
     Active Substance: FENOFIBRATE
  13. FLUTICASONE [Concomitant]
     Active Substance: FLUTICASONE
  14. FUROSEMIDE [Concomitant]
     Active Substance: FUROSEMIDE
  15. HYDROMORPHONE [Concomitant]
     Active Substance: HYDROMORPHONE
  16. K-DUR [Concomitant]
     Active Substance: POTASSIUM CHLORIDE
  17. LEVOTHYROXINE [Concomitant]
     Active Substance: LEVOTHYROXINE
  18. LIRAGLUTIDE [Concomitant]
     Active Substance: LIRAGLUTIDE
  19. METHADONE [Concomitant]
     Active Substance: METHADONE HYDROCHLORIDE
  20. MYRBETRIQ [Concomitant]
     Active Substance: MIRABEGRON
  21. ONDANSETRON [Concomitant]
     Active Substance: ONDANSETRON
  22. PREDNISONE [Concomitant]
     Active Substance: PREDNISONE
  23. PREGABALIN [Concomitant]
     Active Substance: PREGABALIN
  24. SPIRONOLACTONE [Concomitant]
     Active Substance: SPIRONOLACTONE
  25. SULFADIAZINE [Concomitant]
     Active Substance: SULFADIAZINE
  26. WARFARIN [Concomitant]
     Active Substance: WARFARIN

REACTIONS (4)
  - Angioedema [Recovered/Resolved]
  - Hypersensitivity [Recovered/Resolved]
  - Pharyngeal swelling [Recovered/Resolved]
  - Swelling face [Recovered/Resolved]
